FAERS Safety Report 14723239 (Version 1)
Quarter: 2018Q2

REPORT INFORMATION
  Report Type: Spontaneous
  Country: US (occurrence: US)
  Receive Date: 20180405
  Receipt Date: 20180405
  Transmission Date: 20180711
  Serious: Yes (Hospitalization, Other)
  Sender: FDA-Public Use
  Company Number: US-TEVA-2018-US-877432

PATIENT
  Age: 71 Year
  Sex: Female

DRUGS (4)
  1. IMMUNOGLOBULIN IV [Suspect]
     Active Substance: HUMAN IMMUNOGLOBULIN G
     Indication: TOXIC EPIDERMAL NECROLYSIS
     Route: 042
  2. ALLOPURINOL. [Suspect]
     Active Substance: ALLOPURINOL
     Route: 065
  3. METHYLPREDNISOLONE. [Concomitant]
     Active Substance: METHYLPREDNISOLONE
     Route: 042
  4. PREDNISONE. [Concomitant]
     Active Substance: PREDNISONE
     Route: 065

REACTIONS (22)
  - Toxic epidermal necrolysis [Recovering/Resolving]
  - Renal tubular necrosis [Unknown]
  - Acute kidney injury [Unknown]
  - Haemolytic anaemia [Unknown]
  - Oesophagitis [Unknown]
  - Thrombocytopenia [Unknown]
  - Gastric ulcer [Unknown]
  - Acinetobacter infection [Unknown]
  - Metabolic acidosis [Unknown]
  - Ileus [Recovered/Resolved]
  - Hyperglycaemia [Unknown]
  - Sepsis [Unknown]
  - Abdominal abscess [Unknown]
  - Mucosal ulceration [Unknown]
  - Hypotension [Unknown]
  - Leukocytosis [Unknown]
  - Melaena [Recovered/Resolved]
  - Intestinal perforation [Unknown]
  - Diarrhoea [Recovering/Resolving]
  - Klebsiella infection [Unknown]
  - Hypernatraemia [Unknown]
  - Mental status changes [Unknown]
